FAERS Safety Report 5932237-4 (Version None)
Quarter: 2008Q4

REPORT INFORMATION
  Report Type: 
  Country: None (occurrence: None)
  Receive Date: 20081022
  Receipt Date: 20081008
  Transmission Date: 20090506
  Serious: Yes (Hospitalization)
  Sender: FDA-Public Use
  Company Number: JP-1167514

PATIENT
  Age: 75 Year
  Sex: Male

DRUGS (3)
  1. TRAVATAN [Suspect]
     Indication: GLAUCOMA
     Dosage: QD OPHTHALMIC
     Route: 047
     Dates: start: 20081002, end: 20081005
  2. AZOPT [Concomitant]
  3. HYALEIN (HYALURONATE SODIUM) [Concomitant]

REACTIONS (4)
  - BACTERIAL INFECTION [None]
  - EYE INFECTION STAPHYLOCOCCAL [None]
  - PNEUMOCOCCAL INFECTION [None]
  - ULCERATIVE KERATITIS [None]
